FAERS Safety Report 5599534-6 (Version None)
Quarter: 2008Q1

REPORT INFORMATION
  Report Type: 
  Country: None (occurrence: None)
  Receive Date: 20080118
  Receipt Date: 20080108
  Transmission Date: 20080703
  Serious: Yes (Other)
  Sender: FDA-Public Use
  Company Number: 2008SP000556

PATIENT
  Age: 79 Year
  Sex: Female

DRUGS (3)
  1. CHLOR-TRIMETON ALLERGY D (CHLOPHENIRAMINE MALEATE/PSEUDOEPHEDRINE HYDR [Suspect]
     Indication: RHINITIS ALLERGIC
     Dosage: PO
     Route: 048
  2. NIFEDIPINE [Concomitant]
  3. PILOCARPINE [Concomitant]

REACTIONS (9)
  - ANGLE CLOSURE GLAUCOMA [None]
  - CILIARY HYPERAEMIA [None]
  - CORNEAL OEDEMA [None]
  - FLAT ANTERIOR CHAMBER OF EYE [None]
  - INCORRECT DOSE ADMINISTERED [None]
  - INTENTIONAL DRUG MISUSE [None]
  - MEDICATION ERROR [None]
  - NO THERAPEUTIC RESPONSE [None]
  - PUPIL FIXED [None]
